FAERS Safety Report 16675435 (Version 1)
Quarter: 2019Q3

REPORT INFORMATION
  Report Type: Report from Study
  Country: GT (occurrence: GT)
  Receive Date: 20190806
  Receipt Date: 20190806
  Transmission Date: 20191004
  Serious: Yes (Other)
  Sender: FDA-Public Use
  Company Number: PHHY2019GT181358

PATIENT
  Sex: Male
  Weight: 77.98 kg

DRUGS (2)
  1. IRBESARTAN. [Suspect]
     Active Substance: IRBESARTAN
     Indication: PRODUCT USED FOR UNKNOWN INDICATION
     Dosage: 1 DF, QD
     Route: 065
  2. INSULIN [Concomitant]
     Active Substance: INSULIN NOS
     Indication: PRODUCT USED FOR UNKNOWN INDICATION
     Dosage: 70/30
     Route: 065

REACTIONS (7)
  - Vision blurred [Recovering/Resolving]
  - Hypertension [Unknown]
  - Eye haemorrhage [Unknown]
  - Retinal injury [Unknown]
  - Diabetes mellitus [Unknown]
  - Eye disorder [Unknown]
  - Cataract [Unknown]

NARRATIVE: CASE EVENT DATE: 2018
